FAERS Safety Report 17828447 (Version 1)
Quarter: 2020Q2

REPORT INFORMATION
  Report Type: Spontaneous
  Country: US (occurrence: US)
  Receive Date: 20200527
  Receipt Date: 20200527
  Transmission Date: 20200714
  Serious: No
  Sender: FDA-Public Use
  Company Number: None

PATIENT
  Age: 72 Year
  Sex: Male

DRUGS (2)
  1. CEFAZOLIN (CEFAZOLIN NA 250MG/VIL INJ) [Suspect]
     Active Substance: CEFAZOLIN SODIUM
     Indication: HIP ARTHROPLASTY
     Dates: start: 20200514, end: 20200514
  2. CEFAZOLIN (CEFAZOLIN NA 250MG/VIL INJ) [Suspect]
     Active Substance: CEFAZOLIN SODIUM
     Indication: INFECTION
     Dates: start: 20200514, end: 20200514

REACTIONS (1)
  - Anaphylactic reaction [None]

NARRATIVE: CASE EVENT DATE: 20200514
